FAERS Safety Report 12089189 (Version 1)
Quarter: 2016Q1

REPORT INFORMATION
  Report Type: Spontaneous
  Country: US (occurrence: None)
  Receive Date: 20160217
  Receipt Date: 20160217
  Transmission Date: 20160526
  Serious: Yes (Other)
  Sender: FDA-Public Use
  Company Number: None

PATIENT
  Age: 57 Year
  Sex: Female
  Weight: 62.6 kg

DRUGS (7)
  1. MULTI VIT [Concomitant]
  2. 5-HTP [Concomitant]
     Active Substance: OXITRIPTAN
  3. IBUPROFEN. [Concomitant]
     Active Substance: IBUPROFEN
  4. NAPROXEN. [Concomitant]
     Active Substance: NAPROXEN
  5. OMEGA 3 [Concomitant]
     Active Substance: OMEGA-3 FATTY ACIDS
  6. LEVAQUIN [Suspect]
     Active Substance: LEVOFLOXACIN
     Indication: SINUSITIS
     Dosage: 1 PILL ONCE DAILY TAKEN BY MOUTH?STRENGTH - 500
     Route: 048
  7. VIT D-3 [Concomitant]

REACTIONS (4)
  - Tendonitis [None]
  - Movement disorder [None]
  - Musculoskeletal pain [None]
  - Myalgia [None]

NARRATIVE: CASE EVENT DATE: 20160111
